FAERS Safety Report 7978778-X (Version None)
Quarter: 2011Q4

REPORT INFORMATION
  Report Type: 
  Country: None (occurrence: None)
  Receive Date: 20111214
  Receipt Date: 20111202
  Transmission Date: 20120403
  Serious: Yes (Congenital Anomaly)
  Sender: FDA-Public Use
  Company Number: SE-BRISTOL-MYERS SQUIBB COMPANY-16269524

PATIENT
  Sex: Female

DRUGS (4)
  1. DOXYLAMINE SUCCINATE [Suspect]
     Route: 064
  2. PYRIDOXINE HCL [Suspect]
     Route: 064
  3. DICYCLOMINE [Suspect]
     Route: 064
  4. FLUPHENAZINE ENANTHATE [Suspect]
     Route: 064

REACTIONS (1)
  - MULTIPLE CONGENITAL ABNORMALITIES [None]
